FAERS Safety Report 16486956 (Version 1)
Quarter: 2019Q3

REPORT INFORMATION
  Report Type: Spontaneous
  Country: US (occurrence: US)
  Receive Date: 20190625
  Receipt Date: 20190625
  Transmission Date: 20191004
  Serious: Yes (Other)
  Sender: FDA-Public Use
  Company Number: None

PATIENT
  Age: 76 Year
  Sex: Female
  Weight: 62.1 kg

DRUGS (11)
  1. QNASL [Concomitant]
     Active Substance: BECLOMETHASONE DIPROPIONATE
  2. METOPROLOL. [Concomitant]
     Active Substance: METOPROLOL
  3. CALCIUM [Concomitant]
     Active Substance: CALCIUM
  4. CLONAZEPAM. [Concomitant]
     Active Substance: CLONAZEPAM
  5. VITAMIN C [Concomitant]
     Active Substance: ASCORBIC ACID
  6. OLOPATADINE HCL OPHTHALMIC SOLUTION USP 0.1% [Suspect]
     Active Substance: OLOPATADINE
     Indication: HYPERSENSITIVITY
     Dosage: ?          QUANTITY:1 DROP(S);?
     Route: 047
     Dates: start: 20190619, end: 20190625
  7. LAVALBUTEROL [Concomitant]
  8. MULTIVITAMIN [Concomitant]
     Active Substance: VITAMINS
  9. PAROXETINE. [Concomitant]
     Active Substance: PAROXETINE
  10. VIT D [Concomitant]
     Active Substance: VITAMIN D NOS
  11. LORATATDINE [Concomitant]

REACTIONS (3)
  - Headache [None]
  - Hypotension [None]
  - Heart rate decreased [None]

NARRATIVE: CASE EVENT DATE: 20190624
